APPROVED DRUG PRODUCT: TRETINOIN
Active Ingredient: TRETINOIN
Strength: 0.025%
Dosage Form/Route: CREAM;TOPICAL
Application: A218399 | Product #001 | TE Code: AB
Applicant: ALEMBIC PHARMACEUTICALS LTD
Approved: Aug 14, 2025 | RLD: No | RS: No | Type: RX